FAERS Safety Report 18762380 (Version 1)
Quarter: 2021Q1

REPORT INFORMATION
  Report Type: Spontaneous
  Country: US (occurrence: US)
  Receive Date: 20210120
  Receipt Date: 20210120
  Transmission Date: 20210419
  Serious: Yes (Other)
  Sender: FDA-Public Use
  Company Number: US-LUPIN PHARMACEUTICALS INC.-2021-00219

PATIENT
  Age: 58 Year
  Sex: Male

DRUGS (1)
  1. CINACALCET. [Suspect]
     Active Substance: CINACALCET
     Indication: HYPERPARATHYROIDISM PRIMARY
     Dosage: 30 MILLIGRAM, QD
     Route: 065

REACTIONS (4)
  - Blood parathyroid hormone decreased [Recovering/Resolving]
  - Hypocalcaemia [Recovering/Resolving]
  - Paraesthesia [Recovering/Resolving]
  - Hyperphosphataemia [Recovering/Resolving]
